FAERS Safety Report 6581593-5 (Version None)
Quarter: 2010Q1

REPORT INFORMATION
  Report Type: 
  Country: None (occurrence: None)
  Receive Date: 20100215
  Receipt Date: 20100204
  Transmission Date: 20100710
  Serious: Yes (Other)
  Sender: FDA-Public Use
  Company Number: US-JNJFOC-20100203978

PATIENT
  Sex: Female
  Weight: 58.06 kg

DRUGS (9)
  1. DURAGESIC-100 [Suspect]
     Indication: BACK PAIN
     Route: 062
  2. DURAGESIC-100 [Suspect]
     Indication: NECK PAIN
     Route: 062
  3. DURAGESIC-100 [Suspect]
     Route: 062
  4. DURAGESIC-100 [Suspect]
     Route: 062
  5. OXYCODONE HCL [Concomitant]
     Indication: BREAKTHROUGH PAIN
     Route: 048
  6. IMITREX [Concomitant]
     Indication: MIGRAINE PROPHYLAXIS
     Route: 048
  7. EVISTA [Concomitant]
     Indication: OSTEOPOROSIS
     Route: 048
  8. CYMBALTA [Concomitant]
     Indication: FIBROMYALGIA
     Route: 048
  9. ONE A DAY ESSENTIAL VITAMINS [Concomitant]
     Route: 048

REACTIONS (3)
  - BUNION [None]
  - DRUG INEFFECTIVE [None]
  - NEURALGIA [None]
